FAERS Safety Report 12439500 (Version 1)
Quarter: 2016Q2

REPORT INFORMATION
  Report Type: Report from Study
  Country: BE (occurrence: BE)
  Receive Date: 20160606
  Receipt Date: 20160606
  Transmission Date: 20160815
  Serious: Yes (Other)
  Sender: FDA-Public Use
  Company Number: BE-BAYER-2016-021360

PATIENT
  Sex: Male

DRUGS (10)
  1. NEXAVAR [Suspect]
     Active Substance: SORAFENIB
     Indication: HEPATOCELLULAR CARCINOMA
     Dosage: 800 MG, QD
     Route: 048
  2. LOORTAN [Concomitant]
     Dosage: 50 MG, QD
  3. PANTOPRAZOLE [Concomitant]
     Active Substance: PANTOPRAZOLE SODIUM
     Dosage: 40 MG, QD
  4. ZOCOR [Concomitant]
     Active Substance: SIMVASTATIN
     Dosage: 40 MG, QD
  5. TANAKAN [Concomitant]
     Active Substance: GINKGO
     Dosage: UNK
  6. NOVORAPID [Concomitant]
     Active Substance: INSULIN ASPART
  7. LANTUS [Concomitant]
     Active Substance: INSULIN GLARGINE
     Dosage: UNK
  8. ASAFLOW [Concomitant]
     Active Substance: ASPIRIN
     Dosage: 20 MG, BID
  9. NEXAVAR [Suspect]
     Active Substance: SORAFENIB
     Indication: HEPATOCELLULAR CARCINOMA
     Dosage: 400 MG, QD
     Route: 048
     Dates: start: 20160112
  10. INDERAL [Concomitant]
     Active Substance: PROPRANOLOL HYDROCHLORIDE
     Dosage: 20 MG, BID

REACTIONS (22)
  - Hypoglycaemia [Recovered/Resolved]
  - Hypertension [None]
  - Fatigue [None]
  - Vomiting [None]
  - Decreased appetite [None]
  - Hypoglycaemic unconsciousness [None]
  - Weight decreased [None]
  - Pallor [None]
  - Hypoglycaemia [Recovered/Resolved]
  - Decreased appetite [None]
  - Nausea [None]
  - Fatigue [None]
  - Weight decreased [None]
  - Loss of consciousness [None]
  - Fatigue [None]
  - Decreased appetite [None]
  - Diarrhoea [None]
  - Hypoglycaemia [None]
  - Fatigue [None]
  - Hypotension [None]
  - Loss of consciousness [Recovered/Resolved]
  - Wound [None]

NARRATIVE: CASE EVENT DATE: 20160131
